FAERS Safety Report 11402132 (Version 1)
Quarter: 2015Q3

REPORT INFORMATION
  Report Type: Spontaneous
  Country: US (occurrence: US)
  Receive Date: 20150821
  Receipt Date: 20150821
  Transmission Date: 20151125
  Serious: No
  Sender: FDA-Public Use
  Company Number: US-ROCHE-1324836

PATIENT
  Sex: Female
  Weight: 53.12 kg

DRUGS (6)
  1. BENZTROPINE [Concomitant]
     Active Substance: BENZTROPINE
  2. PEGASYS [Suspect]
     Active Substance: PEGINTERFERON ALFA-2A
     Indication: CHRONIC HEPATITIS C
     Route: 058
     Dates: start: 20131114
  3. RIBASPHERE [Suspect]
     Active Substance: RIBAVIRIN
     Indication: CHRONIC HEPATITIS C
     Dosage: DIVIDED DOSES
     Route: 048
     Dates: start: 20131114
  4. RISPERIDONE. [Concomitant]
     Active Substance: RISPERIDONE
  5. BENAZEPRIL [Concomitant]
     Active Substance: BENAZEPRIL HYDROCHLORIDE
  6. AMLODIPINE [Concomitant]
     Active Substance: AMLODIPINE BESYLATE

REACTIONS (10)
  - Dysuria [Unknown]
  - Headache [Recovered/Resolved]
  - Fatigue [Unknown]
  - Glare [Unknown]
  - Abdominal pain upper [Unknown]
  - Unevaluable event [Unknown]
  - Decreased appetite [Unknown]
  - Abdominal discomfort [Unknown]
  - Genital rash [Recovered/Resolved]
  - Pain [Unknown]
